FAERS Safety Report 9689138 (Version 1)
Quarter: 2013Q4

REPORT INFORMATION
  Report Type: Spontaneous
  Country: FR (occurrence: FR)
  Receive Date: 20131114
  Receipt Date: 20131114
  Transmission Date: 20140711
  Serious: Yes (Other)
  Sender: FDA-Public Use
  Company Number: FR-BAXTER-2013BAX044047

PATIENT
  Age: 62 Year
  Sex: Male

DRUGS (12)
  1. ENDOXAN 1000 MG, POUDRE POUR SOLUTION INJECTABLE [Suspect]
     Indication: GLOMERULONEPHRITIS
     Route: 042
     Dates: start: 20130919, end: 20130919
  2. ENDOXAN 1000 MG, POUDRE POUR SOLUTION INJECTABLE [Suspect]
     Indication: ANTINEUTROPHIL CYTOPLASMIC ANTIBODY POSITIVE
     Dosage: 2HRS
     Route: 042
     Dates: start: 20131014, end: 20131014
  3. UROMITEXAN [Concomitant]
     Indication: PRODUCT USED FOR UNKNOWN INDICATION
     Route: 042
     Dates: start: 20130919, end: 20130919
  4. ONDANSETRON [Concomitant]
     Indication: PRODUCT USED FOR UNKNOWN INDICATION
     Route: 048
     Dates: start: 20130919, end: 20130919
  5. LASIX [Concomitant]
     Indication: DRUG THERAPY
     Route: 065
  6. SOLUPRED [Concomitant]
     Indication: DRUG THERAPY
     Route: 065
  7. PANTOPRAZOLE [Concomitant]
     Indication: DRUG THERAPY
     Route: 065
  8. BACTRIM [Concomitant]
     Indication: DRUG THERAPY
     Route: 065
  9. DOLIPRANE [Concomitant]
     Indication: DRUG THERAPY
     Route: 065
  10. XYZALL [Concomitant]
     Indication: RASH
     Route: 065
     Dates: start: 20131021
  11. XYZALL [Concomitant]
     Indication: OEDEMA
  12. INDACATEROL [Concomitant]
     Indication: DRUG THERAPY
     Route: 065

REACTIONS (4)
  - Rash [Not Recovered/Not Resolved]
  - Pyrexia [Recovered/Resolved]
  - Eosinophilia [Not Recovered/Not Resolved]
  - Pyrexia [Unknown]
